FAERS Safety Report 6824610-7 (Version None)
Quarter: 2010Q3

REPORT INFORMATION
  Report Type: 
  Country: None (occurrence: None)
  Receive Date: 20100708
  Receipt Date: 20100628
  Transmission Date: 20110219
  Serious: Yes (Hospitalization, Other)
  Sender: FDA-Public Use
  Company Number: US-AMGEN-KDL417722

PATIENT
  Sex: Male
  Weight: 97.6 kg

DRUGS (14)
  1. ENBREL [Suspect]
     Indication: RHEUMATOID ARTHRITIS
     Route: 058
     Dates: start: 20091001
  2. METHOTREXATE [Concomitant]
     Dates: start: 20070103
  3. FOLIC ACID [Concomitant]
     Dates: start: 20070103
  4. OMEPRAZOLE [Concomitant]
     Dates: start: 20070103
  5. ASPIRIN [Concomitant]
     Dates: start: 20071220
  6. CALCIUM WITH VITAMIN D [Concomitant]
     Dates: start: 20071220
  7. PREDNISONE [Concomitant]
     Dates: start: 20071220
  8. SIMVASTATIN [Concomitant]
     Dates: start: 20071220
  9. TOPROL-XL [Concomitant]
     Dates: start: 20071220
  10. FLONASE [Concomitant]
     Route: 045
     Dates: start: 20080421
  11. ACETAMINOPHEN [Concomitant]
  12. PROTONIX [Concomitant]
  13. MULTI-VITAMINS [Concomitant]
  14. CALCIUM WITH VITAMIN D [Concomitant]

REACTIONS (9)
  - ACQUIRED DIAPHRAGMATIC EVENTRATION [None]
  - ALPHA HAEMOLYTIC STREPTOCOCCAL INFECTION [None]
  - ATELECTASIS [None]
  - BRONCHITIS [None]
  - EMPYEMA [None]
  - HAEMOTHORAX [None]
  - JOINT DESTRUCTION [None]
  - PNEUMOTHORAX [None]
  - RHEUMATOID LUNG [None]
